FAERS Safety Report 6550546 (Version 7)
Quarter: 2015Q2

REPORT INFORMATION
  Report Type: Spontaneous
  Country: US (occurrence: US)
  Receive Date: 20080212
  Receipt Date: 20150528
  Transmission Date: 20150821
  Serious: Yes (Hospitalization, Other)
  Sender: FDA-Public Use
  Company Number: US-BAYER-200812640NA

PATIENT
  Age: 25 Year
  Sex: Female
  Weight: 77 kg

DRUGS (1)
  1. MIRENA [Suspect]
     Active Substance: LEVONORGESTREL
     Indication: CONTRACEPTION
     Dosage: 20 MCG/24HR, CONT
     Route: 015
     Dates: start: 20070629, end: 20080101

REACTIONS (23)
  - Injury [None]
  - Fear [None]
  - Ectopic pregnancy [None]
  - Maternal exposure before pregnancy [None]
  - Pelvic pain [None]
  - Emotional distress [None]
  - Pelvic organ injury [None]
  - Uterine perforation [None]
  - Hepatic cyst [Unknown]
  - Abdominal pain lower [Unknown]
  - Genital haemorrhage [None]
  - Device issue [None]
  - Stress [None]
  - Abdominal pain [None]
  - Device dislocation [Unknown]
  - Vaginal haemorrhage [Unknown]
  - Abortion spontaneous [None]
  - Procedural pain [Unknown]
  - Medical device discomfort [None]
  - Depression [None]
  - Pain [None]
  - Internal injury [None]
  - Anxiety [None]

NARRATIVE: CASE EVENT DATE: 200707
